FAERS Safety Report 14064106 (Version 1)
Quarter: 2017Q4

REPORT INFORMATION
  Report Type: Spontaneous
  Country: DE (occurrence: DE)
  Receive Date: 20171009
  Receipt Date: 20171009
  Transmission Date: 20180321
  Serious: Yes (Hospitalization)
  Sender: FDA-Public Use
  Company Number: DE-PFIZER INC-2017425054

PATIENT
  Age: 64 Year
  Sex: Female
  Weight: 81 kg

DRUGS (6)
  1. VITAMIN B12 [Concomitant]
     Active Substance: CYANOCOBALAMIN
     Route: 048
  2. PANTOPRAZOLE [Concomitant]
     Active Substance: PANTOPRAZOLE
     Dosage: 20 MG, (SINCE A LONGER TIME)
     Route: 048
  3. DEKRISTOL [Concomitant]
     Active Substance: CHOLECALCIFEROL
     Indication: BREAST CANCER METASTATIC
     Dosage: 20000 IU, 2X/WEEK
     Route: 048
  4. CARBIMAZOL [Concomitant]
     Active Substance: CARBIMAZOLE
     Dosage: 10 MG, UNK
     Route: 048
  5. IBRANCE [Suspect]
     Active Substance: PALBOCICLIB
     Indication: BREAST CANCER METASTATIC
     Dosage: 125 MG CYCLIC (3 WEEKS / 1 WEEK PAUSATION)
     Route: 048
     Dates: start: 201705
  6. LETROZOL [Concomitant]
     Active Substance: LETROZOLE
     Indication: BREAST CANCER METASTATIC
     Dosage: 2.5 MG, UNK
     Route: 048
     Dates: start: 201705

REACTIONS (4)
  - C-reactive protein increased [Unknown]
  - White blood cell count decreased [Unknown]
  - Throat tightness [Recovered/Resolved]
  - Dyspnoea [Recovered/Resolved]

NARRATIVE: CASE EVENT DATE: 20170817
